FAERS Safety Report 26059542 (Version 1)
Quarter: 2025Q4

REPORT INFORMATION
  Report Type: Spontaneous
  Country: EU (occurrence: EU)
  Receive Date: 20251118
  Receipt Date: 20251118
  Transmission Date: 20260118
  Serious: Yes (Other)
  Sender: MYLAN
  Company Number: EU-MYLANLABS-2025M1097134

PATIENT
  Age: 40 Year
  Sex: Male

DRUGS (16)
  1. ETOPOSIDE [Suspect]
     Active Substance: ETOPOSIDE
     Indication: Medulloblastoma
     Dosage: UNK, CYCLE; TWO CYCLES
     Dates: start: 202203, end: 202204
  2. ETOPOSIDE [Suspect]
     Active Substance: ETOPOSIDE
     Indication: Metastases to bone
     Dosage: UNK, CYCLE; TWO CYCLES
     Route: 065
     Dates: start: 202203, end: 202204
  3. ETOPOSIDE [Suspect]
     Active Substance: ETOPOSIDE
     Dosage: UNK, CYCLE; TWO CYCLES
     Route: 065
     Dates: start: 202203, end: 202204
  4. ETOPOSIDE [Suspect]
     Active Substance: ETOPOSIDE
     Dosage: UNK, CYCLE; TWO CYCLES
     Dates: start: 202203, end: 202204
  5. CARBOPLATIN [Suspect]
     Active Substance: CARBOPLATIN
     Indication: Medulloblastoma
     Dosage: UNK, CYCLE; TWO CYCLES
     Dates: start: 202203, end: 202204
  6. CARBOPLATIN [Suspect]
     Active Substance: CARBOPLATIN
     Indication: Metastases to bone
     Dosage: UNK, CYCLE; TWO CYCLES
     Route: 065
     Dates: start: 202203, end: 202204
  7. CARBOPLATIN [Suspect]
     Active Substance: CARBOPLATIN
     Dosage: UNK, CYCLE; TWO CYCLES
     Route: 065
     Dates: start: 202203, end: 202204
  8. CARBOPLATIN [Suspect]
     Active Substance: CARBOPLATIN
     Dosage: UNK, CYCLE; TWO CYCLES
     Dates: start: 202203, end: 202204
  9. TEMOZOLOMIDE [Suspect]
     Active Substance: TEMOZOLOMIDE
     Indication: Medulloblastoma
     Dosage: UNK, CYCLE; TWO CYCLES
     Dates: start: 202206, end: 202207
  10. TEMOZOLOMIDE [Suspect]
     Active Substance: TEMOZOLOMIDE
     Indication: Metastases to bone
     Dosage: UNK, CYCLE; TWO CYCLES
     Route: 065
     Dates: start: 202206, end: 202207
  11. TEMOZOLOMIDE [Suspect]
     Active Substance: TEMOZOLOMIDE
     Dosage: UNK, CYCLE; TWO CYCLES
     Route: 065
     Dates: start: 202206, end: 202207
  12. TEMOZOLOMIDE [Suspect]
     Active Substance: TEMOZOLOMIDE
     Dosage: UNK, CYCLE; TWO CYCLES
     Dates: start: 202206, end: 202207
  13. TOPOTECAN [Suspect]
     Active Substance: TOPOTECAN HYDROCHLORIDE
     Indication: Medulloblastoma
     Dosage: UNK, CYCLE; TWO CYCLES
     Dates: start: 202206, end: 202207
  14. TOPOTECAN [Suspect]
     Active Substance: TOPOTECAN HYDROCHLORIDE
     Indication: Metastases to bone
     Dosage: UNK, CYCLE; TWO CYCLES
     Route: 065
     Dates: start: 202206, end: 202207
  15. TOPOTECAN [Suspect]
     Active Substance: TOPOTECAN HYDROCHLORIDE
     Dosage: UNK, CYCLE; TWO CYCLES
     Route: 065
     Dates: start: 202206, end: 202207
  16. TOPOTECAN [Suspect]
     Active Substance: TOPOTECAN HYDROCHLORIDE
     Dosage: UNK, CYCLE; TWO CYCLES
     Dates: start: 202206, end: 202207

REACTIONS (3)
  - Drug ineffective [Unknown]
  - Disease progression [Unknown]
  - Product use in unapproved indication [Unknown]

NARRATIVE: CASE EVENT DATE: 20220101
